FAERS Safety Report 19770680 (Version 2)
Quarter: 2021Q3

REPORT INFORMATION
  Report Type: Spontaneous
  Country: US (occurrence: US)
  Receive Date: 20210831
  Receipt Date: 20210831
  Transmission Date: 20211014
  Serious: No
  Sender: FDA-Public Use
  Company Number: US-SA-2021SA286663

PATIENT
  Age: 67 Year
  Sex: Male

DRUGS (2)
  1. KEVZARA [Suspect]
     Active Substance: SARILUMAB
     Indication: RHEUMATOID ARTHRITIS
  2. KEVZARA [Suspect]
     Active Substance: SARILUMAB
     Indication: BONE DISORDER
     Dosage: 200 MG,QOW
     Route: 058
     Dates: start: 202101

REACTIONS (2)
  - Joint swelling [Not Recovered/Not Resolved]
  - Product use in unapproved indication [Unknown]

NARRATIVE: CASE EVENT DATE: 202101
